FAERS Safety Report 4741779-9 (Version None)
Quarter: 2005Q3

REPORT INFORMATION
  Report Type: 
  Country: None (occurrence: None)
  Receive Date: 20050801
  Receipt Date: 20050623
  Transmission Date: 20060218
  Serious: No
  Sender: FDA-Public Use
  Company Number: 2005PV000123

PATIENT
  Age: 66 Year
  Sex: Female
  Weight: 77.1115 kg

DRUGS (10)
  1. BYETTA [Suspect]
     Indication: DIABETES MELLITUS NON-INSULIN-DEPENDENT
     Dosage: 5 UG; BID; SC
     Route: 058
     Dates: start: 20050616
  2. METFORMIN [Concomitant]
  3. PROTONIX [Concomitant]
  4. ALTACE [Concomitant]
  5. TRICOR [Concomitant]
  6. ALLEGRA [Concomitant]
  7. ADVAIR DISKUS 100/50 [Concomitant]
  8. AVAPRO [Concomitant]
  9. CALCIUM GLUCONATE [Concomitant]
  10. MULTI-VITAMINS [Concomitant]

REACTIONS (4)
  - DECREASED APPETITE [None]
  - DIARRHOEA [None]
  - GASTROINTESTINAL PAIN [None]
  - WEIGHT DECREASED [None]
